FAERS Safety Report 21418224 (Version 2)
Quarter: 2025Q1

REPORT INFORMATION
  Report Type: Spontaneous
  Country: US (occurrence: US)
  Receive Date: 20221006
  Receipt Date: 20250312
  Transmission Date: 20250409
  Serious: No
  Sender: PFIZER
  Company Number: US-PFIZER INC-PV202200054033

PATIENT
  Age: 50 Year
  Sex: Female
  Weight: 59.87 kg

DRUGS (5)
  1. IBRANCE [Suspect]
     Active Substance: PALBOCICLIB
     Indication: Breast cancer stage IV
     Dates: start: 201811, end: 201812
  2. IBRANCE [Suspect]
     Active Substance: PALBOCICLIB
  3. ANASTROZOLE [Concomitant]
     Active Substance: ANASTROZOLE
     Indication: Breast cancer stage IV
     Dosage: 10 MG, DAILY
     Route: 048
  4. GOSERELIN [Concomitant]
     Active Substance: GOSERELIN
     Indication: Breast cancer stage IV
     Dosage: 1 DF, EVERY 3 MONTHS
  5. ZOMETA [Concomitant]
     Active Substance: ZOLEDRONIC ACID

REACTIONS (3)
  - Off label use [Unknown]
  - Product use issue [Unknown]
  - White blood cell disorder [Unknown]
